FAERS Safety Report 11841564 (Version 1)
Quarter: 2015Q4

REPORT INFORMATION
  Report Type: Spontaneous
  Country: US (occurrence: US)
  Receive Date: 20151216
  Receipt Date: 20151216
  Transmission Date: 20160305
  Serious: No
  Sender: FDA-Public Use
  Company Number: US-009507513-1512USA006609

PATIENT
  Age: 32 Year
  Sex: Female

DRUGS (4)
  1. ISENTRESS [Suspect]
     Active Substance: RALTEGRAVIR POTASSIUM
     Dosage: TOTAL DAILY DOSE 800 (UNITS NOT REPORTED), PRIOR TO CONCEPTION
     Route: 048
  2. RITONAVIR. [Suspect]
     Active Substance: RITONAVIR
     Dosage: TOTAL DAILY DOSAGE 200 (UNITS NOT REPORTED), SINCE 9 WEEK EXPOSURE
     Route: 048
  3. EMTRICITABINE (+) TENOFOVIR DISOPROXIL FUMARATE [Suspect]
     Active Substance: EMTRICITABINE\TENOFOVIR DISOPROXIL
     Dosage: TOTAL DAILY DOSE 500 (UNITS NOT REPORTED), PRIOR TO CONCEPTION
     Route: 048
  4. DARUNAVIR [Suspect]
     Active Substance: DARUNAVIR
     Dosage: TOTAL DAILY DOSAGE 1600 (UNITS NOT REPORTYED) SINCE 9 WEEK BEGAN EXPOSURE
     Route: 048

REACTIONS (2)
  - No adverse event [Unknown]
  - Maternal exposure before pregnancy [Unknown]
